FAERS Safety Report 6279394-0 (Version None)
Quarter: 2009Q3

REPORT INFORMATION
  Report Type: 
  Country: None (occurrence: None)
  Receive Date: 20090721
  Receipt Date: 20090706
  Transmission Date: 20100115
  Serious: Yes (Death)
  Sender: FDA-Public Use
  Company Number: 2009002020

PATIENT
  Age: 63 Year
  Sex: Male

DRUGS (11)
  1. ERLOTINIB(ERLOTINIB)(TABLET)(ERLOTINIB) [Suspect]
     Indication: LUNG SQUAMOUS CELL CARCINOMA STAGE UNSPECIFIED
     Dosage: (150 MG,QD),ORAL
     Route: 048
     Dates: start: 20080919, end: 20081223
  2. LIPITOR [Concomitant]
  3. THYRADIN (THYROID) [Concomitant]
  4. ASPIRIN [Concomitant]
  5. ALLOPURINOL [Concomitant]
  6. SELBEX (TEPRENONE) [Concomitant]
  7. PANALDINE (TICLOPIDINE HYDROCHLORIDE) [Concomitant]
  8. SPIROPENT (CLENBUTEROL HYDROCHLORIDE) [Concomitant]
  9. MEDICON (DEXTROMETHORPHAN HYDROBROMIDE) [Concomitant]
  10. MUCODYNE (CARBOCISTEINE) [Concomitant]
  11. GOODMIN [Concomitant]

REACTIONS (6)
  - GENERAL PHYSICAL HEALTH DETERIORATION [None]
  - LUNG SQUAMOUS CELL CARCINOMA STAGE UNSPECIFIED [None]
  - LYMPHANGIOSIS CARCINOMATOSA [None]
  - MALIGNANT NEOPLASM PROGRESSION [None]
  - METASTASES TO LYMPH NODES [None]
  - PNEUMONIA [None]
